FAERS Safety Report 9841336 (Version 1)
Quarter: 2014Q1

REPORT INFORMATION
  Report Type: Spontaneous
  Country: US (occurrence: US)
  Receive Date: 20140124
  Receipt Date: 20140124
  Transmission Date: 20141002
  Serious: No
  Sender: FDA-Public Use
  Company Number: US-009507513-1401USA008903

PATIENT
  Sex: Female

DRUGS (18)
  1. COSOPT [Suspect]
     Indication: GLAUCOMA
     Dosage: 1 GTT, BID IN EACH EYE
  2. COSOPT [Suspect]
     Indication: MACULAR DEGENERATION
  3. PRILOSEC [Concomitant]
     Dosage: 20 MG, QD
  4. GLIPIZIDE [Concomitant]
     Dosage: 2.5 MG, QD
  5. OS-CAL (CALCIUM CARBONATE) [Concomitant]
     Dosage: 500 MG, BID
  6. XANTHOPHYLL [Concomitant]
     Dosage: 20 MG, QD
  7. CHOLECALCIFEROL [Concomitant]
     Dosage: 1000 IU
  8. GLUCOSAMINE HYDROCHLORIDE [Concomitant]
     Dosage: 1500 MG
  9. CHONDROITIN [Concomitant]
     Dosage: 1200 MG
  10. OMEGA-3 MARINE TRIGLYCERIDES [Concomitant]
     Dosage: UNK, BID
  11. ASPIRIN [Concomitant]
     Dosage: 325 MG, QD
  12. SISU SUPER B COMPLEX [Concomitant]
  13. OXYBUTIN [Concomitant]
     Dosage: 5 MG, QD
  14. GINKGO [Concomitant]
     Dosage: UNK, TID
  15. LOVASTATIN [Concomitant]
     Dosage: 20 MG, QD
  16. PEPCID [Concomitant]
     Dosage: 20 MG, UNK
  17. DONEPEZIL HYDROCHLORIDE [Concomitant]
     Dosage: 5 MG, UNK
  18. ZYRTEC [Concomitant]

REACTIONS (2)
  - Lethargy [Recovering/Resolving]
  - Heart rate decreased [Recovering/Resolving]
